FAERS Safety Report 13413166 (Version 1)
Quarter: 2017Q2

REPORT INFORMATION
  Report Type: Spontaneous
  Country: US (occurrence: US)
  Receive Date: 20170407
  Receipt Date: 20170407
  Transmission Date: 20170830
  Serious: Yes (Hospitalization)
  Sender: FDA-Public Use
  Company Number: None

PATIENT
  Age: 54 Year
  Sex: Female
  Weight: 72 kg

DRUGS (8)
  1. TRAMADOL. [Concomitant]
     Active Substance: TRAMADOL
  2. SYNTHROID [Concomitant]
     Active Substance: LEVOTHYROXINE SODIUM
  3. MOVANTIK [Suspect]
     Active Substance: NALOXEGOL OXALATE
     Indication: CONSTIPATION
     Dosage: ?          OTHER FREQUENCY:AT LUNCH;?
     Route: 048
     Dates: start: 20170403, end: 20170405
  4. MOVANTIK [Suspect]
     Active Substance: NALOXEGOL OXALATE
     Indication: GASTROOESOPHAGEAL REFLUX DISEASE
     Dosage: ?          OTHER FREQUENCY:AT LUNCH;?
     Route: 048
     Dates: start: 20170403, end: 20170405
  5. ARTHROTEC [Concomitant]
     Active Substance: DICLOFENAC SODIUM\MISOPROSTOL
  6. NEXIUM [Concomitant]
     Active Substance: ESOMEPRAZOLE MAGNESIUM
  7. LISINOPRIL. [Concomitant]
     Active Substance: LISINOPRIL
  8. ALKA-SELTZER [Concomitant]
     Active Substance: ANHYDROUS CITRIC ACID\ASPIRIN\SODIUM BICARBONATE

REACTIONS (4)
  - Nausea [None]
  - Abdominal pain upper [None]
  - Unevaluable event [None]
  - Muscle spasms [None]

NARRATIVE: CASE EVENT DATE: 20170405
